FAERS Safety Report 22139122 (Version 1)
Quarter: 2023Q1

REPORT INFORMATION
  Report Type: Spontaneous
  Country: US (occurrence: US)
  Receive Date: 20230327
  Receipt Date: 20230327
  Transmission Date: 20230418
  Serious: Yes (Hospitalization, Other)
  Sender: FDA-Public Use
  Company Number: US-TAKEDA-2023TUS028258

PATIENT
  Sex: Male
  Weight: 26.6 kg

DRUGS (8)
  1. VPRIV [Suspect]
     Active Substance: VELAGLUCERASE ALFA
     Indication: Gaucher^s disease type III
     Dosage: 3600 INTERNATIONAL UNIT, Q2WEEKS
     Route: 042
     Dates: start: 202007
  2. KEPPRA [Concomitant]
     Active Substance: LEVETIRACETAM
  3. ONFI [Concomitant]
     Active Substance: CLOBAZAM
  4. VITAMIN B12 [Concomitant]
     Active Substance: CYANOCOBALAMIN
  5. PULMICORT TURBUHALER [Concomitant]
     Active Substance: BUDESONIDE
     Route: 055
  6. SPIRONOLACTONE [Concomitant]
     Active Substance: SPIRONOLACTONE
  7. Polycitra [Concomitant]
     Dosage: UNK
  8. K PHOS NEUTRAL [Concomitant]
     Active Substance: POTASSIUM PHOSPHATE, MONOBASIC\SODIUM PHOSPHATE, DIBASIC, ANHYDROUS\SODIUM PHOSPHATE, MONOBASIC, MON

REACTIONS (2)
  - Ascites [Unknown]
  - Disease progression [Unknown]
